FAERS Safety Report 23966568 (Version 1)
Quarter: 2024Q2

REPORT INFORMATION
  Report Type: Report from Study
  Country: US (occurrence: None)
  Receive Date: 20240612
  Receipt Date: 20240612
  Transmission Date: 20240716
  Serious: Yes (Other)
  Sender: FDA-Public Use
  Company Number: 2024A131306

PATIENT
  Sex: Female

DRUGS (1)
  1. LYNPARZA [Suspect]
     Active Substance: OLAPARIB
     Indication: Fallopian tube cancer
     Route: 048
     Dates: start: 20180702

REACTIONS (6)
  - Weight decreased [Unknown]
  - Complication associated with device [Unknown]
  - Joint injury [Unknown]
  - Osteoarthritis [Unknown]
  - Fatigue [Unknown]
  - Product dose omission issue [Unknown]
